FAERS Safety Report 12373005 (Version 2)
Quarter: 2016Q2

REPORT INFORMATION
  Report Type: Spontaneous
  Country: CN (occurrence: CN)
  Receive Date: 20160516
  Receipt Date: 20160601
  Transmission Date: 20160815
  Serious: Yes (Other)
  Sender: FDA-Public Use
  Company Number: CN-ABBVIE-16P-035-1629232-00

PATIENT
  Age: 3 Year
  Sex: Female

DRUGS (2)
  1. DEPAKINE [Suspect]
     Active Substance: VALPROATE SODIUM
     Route: 048
     Dates: start: 20160426
  2. DEPAKINE [Suspect]
     Active Substance: VALPROATE SODIUM
     Indication: EPILEPSY
     Route: 048
     Dates: start: 20160324, end: 20160426

REACTIONS (5)
  - Bruxism [Recovering/Resolving]
  - Crying [Recovering/Resolving]
  - Eye movement disorder [Recovering/Resolving]
  - Drug ineffective [Recovering/Resolving]
  - Epilepsy [Recovering/Resolving]
